FAERS Safety Report 4914843-9 (Version None)
Quarter: 2006Q1

REPORT INFORMATION
  Report Type: 
  Country: None (occurrence: None)
  Receive Date: 20060217
  Receipt Date: 20060207
  Transmission Date: 20060701
  Serious: Yes (Hospitalization)
  Sender: FDA-Public Use
  Company Number: FR-JNJFOC-20060105913

PATIENT
  Age: 55 Year
  Sex: Male

DRUGS (7)
  1. REMICADE [Suspect]
     Indication: ANKYLOSING SPONDYLITIS
     Dosage: DURATION: 2-3 YEARS
     Route: 042
  2. BIPROFENID [Concomitant]
     Indication: ANKYLOSING SPONDYLITIS
     Route: 048
  3. DOLIPRANE [Concomitant]
     Indication: ANKYLOSING SPONDYLITIS
     Route: 048
  4. LEVOTHYROX [Concomitant]
     Indication: THYROIDECTOMY
     Route: 048
  5. OMEPRAZOLE [Concomitant]
     Indication: DRUG USE FOR UNKNOWN INDICATION
     Route: 048
  6. HYPERIUM [Concomitant]
     Route: 048
  7. MONOTILDIEM [Concomitant]
     Route: 048

REACTIONS (6)
  - DYSKINESIA [None]
  - LEUKOENCEPHALOPATHY [None]
  - NERVOUS SYSTEM DISORDER [None]
  - NUCLEAR MAGNETIC RESONANCE IMAGING BRAIN ABNORMAL [None]
  - PAIN [None]
  - PYRAMIDAL TRACT SYNDROME [None]
